FAERS Safety Report 7751441-6 (Version None)
Quarter: 2011Q3

REPORT INFORMATION
  Report Type: 
  Country: None (occurrence: None)
  Receive Date: 20110914
  Receipt Date: 20110902
  Transmission Date: 20111222
  Serious: Yes (Other)
  Sender: FDA-Public Use
  Company Number: PHHY2011NO78412

PATIENT
  Age: 24 Year
  Sex: Male

DRUGS (2)
  1. ZYRTEC [Concomitant]
     Dosage: UNK UKN, UNK
  2. RITALIN-SR [Suspect]
     Dosage: 30 MG, UNK
     Dates: start: 20110520

REACTIONS (2)
  - BLOOD CREATINE PHOSPHOKINASE INCREASED [None]
  - DECREASED ACTIVITY [None]
